FAERS Safety Report 10793901 (Version 1)
Quarter: 2015Q1

REPORT INFORMATION
  Report Type: Spontaneous
  Country: US (occurrence: US)
  Receive Date: 20150213
  Receipt Date: 20150213
  Transmission Date: 20150721
  Serious: Yes (Other)
  Sender: FDA-Public Use
  Company Number: US-APOTEX-2014AP000174

PATIENT
  Age: 61 Year
  Sex: Male

DRUGS (4)
  1. CRESTOR [Concomitant]
     Active Substance: ROSUVASTATIN CALCIUM
  2. PRAVASTATIN [Suspect]
     Active Substance: PRAVASTATIN\PRAVASTATIN SODIUM
     Indication: HYPERCHOLESTEROLAEMIA
     Route: 048
     Dates: end: 20140102
  3. LYRICA [Concomitant]
     Active Substance: PREGABALIN
  4. VALIUM                             /00266901/ [Concomitant]

REACTIONS (7)
  - Loss of libido [Recovered/Resolved]
  - Headache [Recovering/Resolving]
  - Erectile dysfunction [Recovered/Resolved]
  - Dizziness [Unknown]
  - Haemorrhage [Unknown]
  - Purulent discharge [Not Recovered/Not Resolved]
  - Sinus disorder [Recovered/Resolved]
